FAERS Safety Report 7088092-5 (Version None)
Quarter: 2010Q4

REPORT INFORMATION
  Report Type: 
  Country: None (occurrence: None)
  Receive Date: 20101108
  Receipt Date: 20101025
  Transmission Date: 20110411
  Serious: Yes (Hospitalization)
  Sender: FDA-Public Use
  Company Number: US-ELI_LILLY_AND_COMPANY-US201002006600

PATIENT
  Sex: Female

DRUGS (11)
  1. FORTEO [Suspect]
     Indication: OSTEOPOROSIS
     Dosage: 20 UG, DAILY (1/D)
     Route: 065
     Dates: start: 20090111
  2. LAMOTRIGINE [Concomitant]
     Dosage: 625 MG, UNKNOWN
     Route: 065
  3. LYRICA [Concomitant]
     Dosage: UNK, UNKNOWN
     Route: 065
  4. ZONISAMIDE [Concomitant]
     Dosage: UNK, UNKNOWN
     Route: 065
  5. TRANXENE [Concomitant]
     Dosage: UNK, UNKNOWN
     Route: 065
  6. ZOLOFT [Concomitant]
     Dosage: UNK, UNKNOWN
     Route: 065
  7. MACRODANTIN [Concomitant]
     Dosage: UNK, UNKNOWN
     Route: 065
  8. MULTI-VITAMIN [Concomitant]
     Dosage: UNK, UNKNOWN
     Route: 065
  9. CALCIUM [Concomitant]
     Dosage: UNK, UNKNOWN
     Route: 065
  10. GLUCOSAMINE [Concomitant]
     Dosage: UNK, UNKNOWN
     Route: 065
  11. ATIVAN [Concomitant]
     Indication: CONVULSION
     Dosage: UNK, AS NEEDED
     Route: 065

REACTIONS (8)
  - ARTHRITIS [None]
  - ARTHROPATHY [None]
  - CHONDROPATHY [None]
  - JOINT SPRAIN [None]
  - JOINT SWELLING [None]
  - KNEE ARTHROPLASTY [None]
  - NAUSEA [None]
  - WEIGHT BEARING DIFFICULTY [None]
